FAERS Safety Report 19697451 (Version 1)
Quarter: 2021Q3

REPORT INFORMATION
  Report Type: Spontaneous
  Country: CN (occurrence: CN)
  Receive Date: 20210813
  Receipt Date: 20210813
  Transmission Date: 20211014
  Serious: No
  Sender: FDA-Public Use
  Company Number: CN-LUPIN PHARMACEUTICALS INC.-2021-14471

PATIENT
  Age: 34 Year
  Sex: Male

DRUGS (5)
  1. VITAMIN C [Suspect]
     Active Substance: ASCORBIC ACID
     Indication: COVID-19
     Dosage: 3 GRAM, QD
     Route: 065
     Dates: start: 202001
  2. PIPERACILLIN AND TAZOBACTAM [Suspect]
     Active Substance: PIPERACILLIN SODIUM\TAZOBACTAM SODIUM
     Indication: COVID-19
     Dosage: 4.5 GRAM, QD
     Route: 065
     Dates: start: 202001
  3. INTERFERON ALFA?2A RECOMBINANT [Suspect]
     Active Substance: INTERFERON ALFA-2A
     Indication: COVID-19
     Dosage: UNK (300 MILLION UNITS)
     Route: 065
     Dates: start: 202001
  4. OSELTAMIVIR [Suspect]
     Active Substance: OSELTAMIVIR
     Indication: COVID-19
     Dosage: 75 MILLIGRAM, BID
     Route: 065
     Dates: start: 202001
  5. MOXIFLOXACIN. [Suspect]
     Active Substance: MOXIFLOXACIN
     Indication: COVID-19
     Dosage: 0.4 GRAM, QD
     Route: 065
     Dates: start: 202001

REACTIONS (1)
  - Off label use [Unknown]

NARRATIVE: CASE EVENT DATE: 202001
